FAERS Safety Report 8819184 (Version 1)
Quarter: 2012Q4

REPORT INFORMATION
  Report Type: 
  Country: US (occurrence: US)
  Receive Date: 20121001
  Receipt Date: 20121001
  Transmission Date: 20130627
  Serious: Yes (Other)
  Sender: FDA-Public Use
  Company Number: US-PFIZER INC-2012240695

PATIENT
  Sex: Female
  Weight: 90.7 kg

DRUGS (3)
  1. GEODON [Suspect]
     Indication: BIPOLAR DISORDER
     Dosage: 80 mg, 1x/day
     Dates: start: 2008
  2. TOPAMAX [Concomitant]
     Dosage: 100 mg, 2x/day
  3. TEGRETOL [Concomitant]
     Dosage: 200 mg, 2x/day

REACTIONS (3)
  - Weight increased [Unknown]
  - Salivary hypersecretion [Unknown]
  - Haematocrit increased [Unknown]
